FAERS Safety Report 6382418-3 (Version None)
Quarter: 2009Q3

REPORT INFORMATION
  Report Type: 
  Country: None (occurrence: None)
  Receive Date: 20090924
  Receipt Date: 20080725
  Transmission Date: 20100115
  Serious: Yes (Life-Threatening, Hospitalization, Other)
  Sender: FDA-Public Use
  Company Number: WAES 0807USA00084

PATIENT
  Age: 53 Year
  Sex: Male
  Weight: 120.2032 kg

DRUGS (4)
  1. VYTORIN [Suspect]
     Indication: DIABETES MELLITUS
     Dosage: 10-40 MG/DAILY/PO
     Route: 048
     Dates: start: 20060213, end: 20080507
  2. VYTORIN [Suspect]
     Indication: HYPERLIPIDAEMIA
     Dosage: 10-40 MG/DAILY/PO
     Route: 048
     Dates: start: 20060213, end: 20080507
  3. PRILOSEC [Concomitant]
  4. METFORMIN [Concomitant]

REACTIONS (2)
  - RHABDOMYOLYSIS [None]
  - SYNCOPE [None]
